FAERS Safety Report 11629422 (Version 2)
Quarter: 2015Q4

REPORT INFORMATION
  Report Type: Report from Study
  Country: US (occurrence: US)
  Receive Date: 20151014
  Receipt Date: 20151023
  Transmission Date: 20160304
  Serious: Yes (Death)
  Sender: FDA-Public Use
  Company Number: US-CELGENE-USA-2015102468

PATIENT
  Age: 73 Year
  Sex: Female
  Weight: 52.8 kg

DRUGS (23)
  1. PLAVIX [Concomitant]
     Active Substance: CLOPIDOGREL BISULFATE
     Indication: ANTICOAGULANT THERAPY
     Route: 048
     Dates: start: 201408
  2. XYZAL [Concomitant]
     Active Substance: LEVOCETIRIZINE DIHYDROCHLORIDE
     Indication: URTICARIA
  3. PHILLIPS 500 [Concomitant]
     Indication: CONSTIPATION
     Route: 048
     Dates: start: 201501
  4. ENTINOSTAT [Suspect]
     Active Substance: ENTINOSTAT
     Indication: PRODUCT USED FOR UNKNOWN INDICATION
     Dosage: 10 MILLIGRAM
     Route: 065
  5. TOFRANIL [Concomitant]
     Active Substance: IMIPRAMINE HYDROCHLORIDE
     Indication: DEPRESSION
     Route: 048
     Dates: start: 2000
  6. SERAX [Concomitant]
     Active Substance: OXAZEPAM
     Indication: SLEEP DISORDER
     Dosage: 120 MILLIGRAM
     Route: 048
     Dates: start: 1975
  7. OXYGEN. [Concomitant]
     Active Substance: OXYGEN
     Indication: PRODUCT USED FOR UNKNOWN INDICATION
     Dosage: 10 MILLIGRAM
     Route: 065
  8. TOPROL XL [Concomitant]
     Active Substance: METOPROLOL SUCCINATE
     Indication: ANGINA PECTORIS
     Dosage: 75 MILLIGRAM
     Route: 048
     Dates: start: 1990
  9. ZOCOR [Concomitant]
     Active Substance: SIMVASTATIN
     Indication: BLOOD CHOLESTEROL
     Dosage: 50 MILLIGRAM
     Route: 048
     Dates: start: 20150212
  10. VITAMIN D3 [Concomitant]
     Active Substance: CHOLECALCIFEROL
     Indication: SUPPLEMENTATION THERAPY
     Dosage: 1,000 UNITS
     Route: 048
     Dates: start: 2013
  11. ISORDIL [Concomitant]
     Active Substance: ISOSORBIDE DINITRATE
     Indication: ANGINA PECTORIS
     Route: 048
     Dates: start: 201411
  12. XYZAL [Concomitant]
     Active Substance: LEVOCETIRIZINE DIHYDROCHLORIDE
     Indication: SEASONAL ALLERGY
     Route: 048
     Dates: start: 20150508
  13. CALCIUM CARBONATE. [Concomitant]
     Active Substance: CALCIUM CARBONATE
     Indication: SUPPLEMENTATION THERAPY
     Dosage: 50 MILLIGRAM
     Route: 048
     Dates: start: 201410
  14. PROTONIX [Concomitant]
     Active Substance: PANTOPRAZOLE SODIUM
     Indication: DYSPEPSIA
     Dosage: 5 MILLIGRAM
     Route: 048
     Dates: start: 20150706
  15. BACTRIM [Concomitant]
     Active Substance: SULFAMETHOXAZOLE\TRIMETHOPRIM
     Indication: ANTIBIOTIC THERAPY
     Dosage: 400-80MG
     Route: 048
     Dates: start: 20150824, end: 20150904
  16. VIDAZA [Suspect]
     Active Substance: AZACITIDINE
     Indication: NON-SMALL CELL LUNG CANCER
     Dosage: 64.8 MILLIGRAM
     Route: 058
     Dates: start: 20150406, end: 20150413
  17. NIVOLUMAB [Suspect]
     Active Substance: NIVOLUMAB
     Route: 041
     Dates: start: 20150702
  18. COMPAZINE [Concomitant]
     Active Substance: PROCHLORPERAZINE MALEATE
     Indication: NAUSEA
     Dosage: 500 MILLIGRAM
     Route: 048
     Dates: start: 20150327
  19. DELTASONE [Concomitant]
     Active Substance: PREDNISONE
     Indication: PLATELET DISORDER
     Dosage: 260 MILLIGRAM
     Route: 048
     Dates: start: 20150821
  20. LOVENOX [Concomitant]
     Active Substance: ENOXAPARIN SODIUM
     Indication: ANTICOAGULANT THERAPY
     Dosage: 60MG/0.6ML
     Route: 058
     Dates: start: 20150819, end: 20150903
  21. NIVOLUMAB [Suspect]
     Active Substance: NIVOLUMAB
     Indication: NON-SMALL CELL LUNG CANCER
     Route: 041
     Dates: start: 20150507
  22. TYLENOL [Concomitant]
     Active Substance: ACETAMINOPHEN
     Indication: ANALGESIC THERAPY
     Route: 048
     Dates: start: 20150406
  23. SERAX [Concomitant]
     Active Substance: OXAZEPAM
     Indication: ANXIETY

REACTIONS (1)
  - Lung neoplasm malignant [Fatal]

NARRATIVE: CASE EVENT DATE: 20151007
